FAERS Safety Report 24024580 (Version 2)
Quarter: 2024Q2

REPORT INFORMATION
  Report Type: Report from Study
  Country: IN (occurrence: IN)
  Receive Date: 20240628
  Receipt Date: 20240628
  Transmission Date: 20240716
  Serious: No
  Sender: FDA-Public Use
  Company Number: IN-ROCHE-3326073

PATIENT
  Age: 71 Year
  Sex: Female
  Weight: 68.0 kg

DRUGS (2)
  1. PHESGO [Suspect]
     Active Substance: HYALURONIDASE-ZZXF\PERTUZUMAB\TRASTUZUMAB
     Indication: Breast cancer
     Dosage: INTERVAL - 21 DAYS
     Route: 058
     Dates: start: 20230128
  2. PHESGO [Suspect]
     Active Substance: HYALURONIDASE-ZZXF\PERTUZUMAB\TRASTUZUMAB
     Route: 058

REACTIONS (7)
  - Blood potassium decreased [Unknown]
  - Infection [Unknown]
  - COVID-19 [Unknown]
  - Malaise [Unknown]
  - Somnolence [Unknown]
  - Fatigue [Unknown]
  - COVID-19 pneumonia [Unknown]

NARRATIVE: CASE EVENT DATE: 20230404
